FAERS Safety Report 5526229-7 (Version None)
Quarter: 2007Q4

REPORT INFORMATION
  Report Type: 
  Country: None (occurrence: None)
  Receive Date: 20071127
  Receipt Date: 20071116
  Transmission Date: 20080405
  Serious: Yes (Other)
  Sender: FDA-Public Use
  Company Number: PHBS2007JP18731

PATIENT
  Age: 5 Year
  Sex: Female

DRUGS (5)
  1. CYCLOSPORINE [Suspect]
     Indication: RENAL TRANSPLANT
     Route: 065
  2. SIMULECT [Suspect]
     Indication: RENAL TRANSPLANT
     Route: 065
  3. MYCOPHENOLATE MOFETIL [Concomitant]
     Indication: RENAL TRANSPLANT
  4. STEROIDS NOS [Concomitant]
     Indication: RENAL TRANSPLANT
  5. DSG [Concomitant]

REACTIONS (3)
  - DIABETES MELLITUS [None]
  - GRAFT DYSFUNCTION [None]
  - LYMPHOCELE [None]
